FAERS Safety Report 21774403 (Version 2)
Quarter: 2022Q4

REPORT INFORMATION
  Report Type: Spontaneous
  Country: CA (occurrence: CA)
  Receive Date: 20221224
  Receipt Date: 20221228
  Transmission Date: 20230113
  Serious: Yes (Other)
  Sender: FDA-Public Use
  Company Number: CA-CELLTRION INC.-2022CA017363

PATIENT

DRUGS (4)
  1. INFLECTRA [Suspect]
     Active Substance: INFLIXIMAB-DYYB
     Indication: Crohn^s disease
     Dosage: 400 MG
     Route: 042
     Dates: start: 20221031
  2. INFLECTRA [Suspect]
     Active Substance: INFLIXIMAB-DYYB
     Dosage: 1 DF, DOSE 0 OVER 2 DAYS 400 MG; DAY 1, 400 MG ON DAY 2, THEN 10 MG/KG Q 0, 2, 6 WK THEN EVERY 8 WK
     Route: 042
     Dates: start: 20221031
  3. INFLECTRA [Suspect]
     Active Substance: INFLIXIMAB-DYYB
     Dosage: 400 MG
     Route: 042
     Dates: start: 20221115
  4. INFLECTRA [Suspect]
     Active Substance: INFLIXIMAB-DYYB
     Dosage: 1 DF, DOSE 0 OVER 2 DAYS 400 MG; DAY 1, 400 MG; DAY 2, THEN 10 MG/KG Q 0, 2, 6 WK THEN EVERY 8 WK
     Route: 042
     Dates: start: 20221216

REACTIONS (5)
  - Cerebral disorder [Unknown]
  - Memory impairment [Unknown]
  - Off label use [Unknown]
  - Off label use [Unknown]
  - Inappropriate schedule of product administration [Unknown]

NARRATIVE: CASE EVENT DATE: 20220101
